FAERS Safety Report 4594617-1 (Version None)
Quarter: 2005Q1

REPORT INFORMATION
  Report Type: 
  Country: None (occurrence: None)
  Receive Date: 20050301
  Receipt Date: 20041104
  Transmission Date: 20050727
  Serious: No
  Sender: FDA-Public Use
  Company Number: US-BRISTOL-MYERS SQUIBB COMPANY-12757084

PATIENT
  Age: 82 Year
  Sex: Male

DRUGS (1)
  1. ERBITUX [Suspect]
     Dosage: TREATMENT WITHHELD UNTIL IMPROVEMENT
     Route: 042
     Dates: start: 20041025, end: 20041025

REACTIONS (1)
  - RASH [None]
